FAERS Safety Report 10748785 (Version 1)
Quarter: 2015Q1

REPORT INFORMATION
  Report Type: Spontaneous
  Country: US (occurrence: None)
  Receive Date: 20150128
  Receipt Date: 20150128
  Transmission Date: 20150721
  Serious: Yes (Hospitalization, Other)
  Sender: FDA-Public Use
  Company Number: None

PATIENT
  Age: 65 Year
  Sex: Male
  Weight: 144 kg

DRUGS (1)
  1. DABIGATRAN [Suspect]
     Active Substance: DABIGATRAN
     Indication: ATRIAL FIBRILLATION
     Dosage: SINCE AT LEAST JANUARY 2014, 150MG, BID, ORAL
     Route: 048
     Dates: start: 201401

REACTIONS (4)
  - Mental status changes [None]
  - Melaena [None]
  - Chest pain [None]
  - Haemoglobin decreased [None]

NARRATIVE: CASE EVENT DATE: 20140714
